FAERS Safety Report 9333169 (Version 1)
Quarter: 2013Q2

REPORT INFORMATION
  Report Type: Spontaneous
  Country: US (occurrence: None)
  Receive Date: 20130604
  Receipt Date: 20130604
  Transmission Date: 20140414
  Serious: Yes (Death, Life-Threatening)
  Sender: FDA-Public Use
  Company Number: 2013AP005704

PATIENT
  Age: 37 Year
  Sex: Male

DRUGS (8)
  1. METFOMIN HYDROCHLORIDE [Suspect]
  2. LISINOPRIL [Concomitant]
  3. METAMUCIL [Concomitant]
  4. COLACE [Concomitant]
  5. VALPROIC ACID [Concomitant]
  6. PALIPERIDONE [Concomitant]
  7. SIMVASTATIN [Concomitant]
  8. ASPIRIN [Concomitant]

REACTIONS (6)
  - Lactic acidosis [None]
  - Abdominal pain [None]
  - Dizziness [None]
  - Vomiting [None]
  - Constipation [None]
  - Unresponsive to stimuli [None]
